FAERS Safety Report 5385729-3 (Version None)
Quarter: 2007Q3

REPORT INFORMATION
  Report Type: 
  Country: None (occurrence: None)
  Receive Date: 20070710
  Receipt Date: 20070228
  Transmission Date: 20080115
  Serious: Yes (Hospitalization)
  Sender: FDA-Public Use
  Company Number: US-2007-009878

PATIENT
  Age: 28 Year
  Sex: Female
  Weight: 108.8 kg

DRUGS (4)
  1. YASMIN [Suspect]
     Dosage: 1 TAB(S), 1X/DAY, ORAL
     Route: 048
     Dates: end: 20061210
  2. SIMVASTATIN [Concomitant]
  3. ZYRTEC [Concomitant]
  4. TOPAMAX [Concomitant]

REACTIONS (2)
  - PULMONARY EMBOLISM [None]
  - TACHYCARDIA [None]
